FAERS Safety Report 7469147-X (Version None)
Quarter: 2011Q2

REPORT INFORMATION
  Report Type: 
  Country: None (occurrence: None)
  Receive Date: 20110510
  Receipt Date: 20101220
  Transmission Date: 20111010
  Serious: Yes (Hospitalization, Other)
  Sender: FDA-Public Use
  Company Number: US-BAYER-201022584NA

PATIENT
  Age: 35 Year
  Sex: Female
  Weight: 106.58 kg

DRUGS (21)
  1. YAZ [Suspect]
     Indication: PREMENSTRUAL SYNDROME
     Route: 048
  2. ANTIPROPULSIVES [Concomitant]
     Dosage: UNK UNK, PRN
  3. MICARDIS HCT [Concomitant]
     Dosage: 80 MG, UNK
  4. ZANTAC [Concomitant]
     Dosage: 150 MG, PRN
  5. LISINOPRIL [Concomitant]
     Dosage: 20 MG, CONT
  6. NEXIUM [Concomitant]
     Dosage: 40 MG, CONT
  7. ALBUTEROL [Concomitant]
     Dosage: UNK UNK, PRN
  8. HYDROCODONE BITARTRATE [Concomitant]
     Dosage: UNK UNK, PRN
     Route: 048
  9. YASMIN [Suspect]
     Indication: PREMENSTRUAL SYNDROME
     Route: 048
  10. BENICAR HCT [Concomitant]
     Dosage: UNK UNK, CONT
     Route: 048
  11. IBUPROFEN [Concomitant]
  12. MOTRIN [Concomitant]
  13. PHENERGAN HCL [Concomitant]
     Dosage: 25 MG, QID
  14. VENTOLIN [Concomitant]
  15. NAPROXEN [Concomitant]
  16. HYDROCHLOROTHIAZIDE [Concomitant]
     Dosage: 12.5 MG, CONT
  17. SYMBICORT [Concomitant]
  18. ZEGERID [Concomitant]
     Dosage: UNK UNK, CONT
  19. DROSPIRENONE AND ETHINYL ESTRADIOL [Suspect]
     Indication: PRODUCT USED FOR UNKNOWN INDICATION
  20. PREVACID [Concomitant]
     Dosage: 30 MG, BID
  21. RANITIDINE HYDROCHLORIDE [Concomitant]
     Dosage: 150 MG, PRN

REACTIONS (7)
  - ABDOMINAL PAIN UPPER [None]
  - MENTAL DISORDER [None]
  - CHOLECYSTITIS [None]
  - ABDOMINAL DISTENSION [None]
  - INJURY [None]
  - BILIARY DYSKINESIA [None]
  - NAUSEA [None]
